FAERS Safety Report 15757919 (Version 1)
Quarter: 2018Q4

REPORT INFORMATION
  Report Type: Spontaneous
  Country: CZ (occurrence: CZ)
  Receive Date: 20181225
  Receipt Date: 20181225
  Transmission Date: 20190205
  Serious: Yes (Life-Threatening, Other)
  Sender: FDA-Public Use
  Company Number: CZ-ACCORD-097018

PATIENT
  Age: 69 Year
  Sex: Male

DRUGS (5)
  1. IRINOTECAN [Suspect]
     Active Substance: IRINOTECAN
     Indication: ADENOCARCINOMA
     Dosage: FROM 29-NOV-2010 TO 12-APR-2011, RE INITIATED ON 11-MAR-2015
  2. FOLINIC ACID [Suspect]
     Active Substance: LEUCOVORIN
     Indication: ADENOCARCINOMA
     Dosage: FROM 29-NOV-2010 TO 12-APR-2011, RE INITIATED ON 11-MAR-2015
  3. SIMVASTATIN. [Suspect]
     Active Substance: SIMVASTATIN
     Indication: ADENOCARCINOMA
     Dosage: FROM 29-NOV-2010 TO 12-APR-2011, RE INITIATED ON 11-MAR-2015
  4. FLUOROURACIL. [Suspect]
     Active Substance: FLUOROURACIL
     Indication: ADENOCARCINOMA
     Dosage: FROM 29-NOV-2010 TO 12-APR-2011, RE INITIATED ON 11-MAR-2015
  5. OXALIPLATIN. [Suspect]
     Active Substance: OXALIPLATIN
     Indication: ADENOCARCINOMA
     Dosage: FROM 29-NOV-2010 TO 12-APR-2011, RE INITIATED ON 11-MAR-2015

REACTIONS (5)
  - Cholecystitis acute [Unknown]
  - Neutropenia [Unknown]
  - Haematotoxicity [Unknown]
  - Gastrointestinal toxicity [Unknown]
  - Anaemia [Unknown]
